FAERS Safety Report 7079549-1 (Version None)
Quarter: 2010Q4

REPORT INFORMATION
  Report Type: 
  Country: None (occurrence: None)
  Receive Date: 20101102
  Receipt Date: 20101007
  Transmission Date: 20110411
  Serious: Yes (Other)
  Sender: FDA-Public Use
  Company Number: GB-CUBIST-2010S1001657

PATIENT

DRUGS (3)
  1. CUBICIN [Suspect]
  2. PENICILLIN G [Concomitant]
  3. VANCOMYCIN [Concomitant]

REACTIONS (3)
  - ANTIMICROBIAL SUSCEPTIBILITY TEST RESISTANT [None]
  - CARDIAC VALVE ABSCESS [None]
  - DRUG INEFFECTIVE FOR UNAPPROVED INDICATION [None]
